FAERS Safety Report 25862343 (Version 2)
Quarter: 2025Q4

REPORT INFORMATION
  Report Type: Spontaneous
  Country: JP (occurrence: JP)
  Receive Date: 20250930
  Receipt Date: 20251009
  Transmission Date: 20260118
  Serious: No
  Sender: ASTELLAS
  Company Number: JP-ASTELLAS-2025-AER-046678

PATIENT
  Age: 78 Year
  Sex: Male

DRUGS (2)
  1. MIRABEGRON [Suspect]
     Active Substance: MIRABEGRON
     Indication: Hypertonic bladder
     Route: 048
     Dates: start: 20240917
  2. TAMBOCOR [Concomitant]
     Active Substance: FLECAINIDE ACETATE
     Indication: Arrhythmia
     Route: 048
     Dates: start: 202505

REACTIONS (1)
  - Labelled drug-drug interaction issue [Unknown]

NARRATIVE: CASE EVENT DATE: 20250501
